FAERS Safety Report 20059408 (Version 2)
Quarter: 2021Q4

REPORT INFORMATION
  Report Type: Report from Study
  Country: US (occurrence: US)
  Receive Date: 20211111
  Receipt Date: 20211210
  Transmission Date: 20220303
  Serious: Yes (Hospitalization, Other)
  Sender: FDA-Public Use
  Company Number: US-UCBSA-2021051966

PATIENT
  Sex: Female

DRUGS (3)
  1. LEVETIRACETAM [Suspect]
     Active Substance: LEVETIRACETAM
     Indication: Seizure
     Dosage: 500MG 1.5 TAB ONCE DAILY (QD)
     Route: 048
  2. LEVETIRACETAM [Suspect]
     Active Substance: LEVETIRACETAM
     Dosage: 500MG 1 TAB MORNING AND HALF EVENING
     Route: 048
     Dates: start: 20210730
  3. WAL PHED SINUS + ALLERGY [Concomitant]
     Indication: Product used for unknown indication
     Dosage: UNK

REACTIONS (8)
  - Brain operation [Not Recovered/Not Resolved]
  - Cerebral cyst [Not Recovered/Not Resolved]
  - Seizure [Unknown]
  - Balance disorder [Unknown]
  - Fall [Unknown]
  - Muscular weakness [Unknown]
  - Product use issue [Unknown]
  - Wrong technique in product usage process [Unknown]
